FAERS Safety Report 5819960-7 (Version None)
Quarter: 2008Q3

REPORT INFORMATION
  Report Type: 
  Country: None (occurrence: None)
  Receive Date: 20080721
  Receipt Date: 20080707
  Transmission Date: 20090109
  Serious: Yes (Hospitalization)
  Sender: FDA-Public Use
  Company Number: 2008001497

PATIENT
  Sex: Female
  Weight: 32.7 kg

DRUGS (5)
  1. ERLOTINIB (ERLOTINIB) (TABLET) (ERLOTINIB) [Suspect]
     Indication: OESOPHAGEAL CARCINOMA
     Dosage: 100 MG, QD, ORAL
     Route: 048
     Dates: start: 20080505
  2. BEVACIZUMAB (SOLUTION) [Suspect]
     Dosage: 15 MG/KG, INTRAENOUS
     Route: 042
     Dates: start: 20080505
  3. PACLITAXEL (PACILTAXEL) [Concomitant]
  4. CARBOPLATIN [Concomitant]
  5. FLUOROURACIL [Concomitant]

REACTIONS (14)
  - ABDOMINAL PAIN UPPER [None]
  - BLOOD CALCIUM DECREASED [None]
  - BLOOD POTASSIUM DECREASED [None]
  - CLOSTRIDIUM DIFFICILE COLITIS [None]
  - DEHYDRATION [None]
  - DISCOMFORT [None]
  - DRUG TOXICITY [None]
  - DYSPHAGIA [None]
  - FAILURE TO THRIVE [None]
  - NAUSEA [None]
  - PAIN [None]
  - PANCYTOPENIA [None]
  - PNEUMONIA [None]
  - TACHYCARDIA [None]
